FAERS Safety Report 11029500 (Version 3)
Quarter: 2015Q2

REPORT INFORMATION
  Report Type: Report from Study
  Country: US (occurrence: US)
  Receive Date: 20150415
  Receipt Date: 20150506
  Transmission Date: 20150821
  Serious: Yes (Hospitalization, Other)
  Sender: FDA-Public Use
  Company Number: US-GILEAD-2015-0148356

PATIENT
  Age: 32 Year
  Sex: Female

DRUGS (4)
  1. AMBRISENTAN [Suspect]
     Active Substance: AMBRISENTAN
     Indication: PRODUCT USED FOR UNKNOWN INDICATION
     Dosage: 10 MG, QD
     Route: 065
     Dates: start: 20100304
  2. VELETRI [Concomitant]
     Active Substance: EPOPROSTENOL
  3. REVATIO [Concomitant]
     Active Substance: SILDENAFIL CITRATE
  4. FLOLAN [Concomitant]
     Active Substance: EPOPROSTENOL SODIUM

REACTIONS (5)
  - Chest pain [Unknown]
  - Nausea [Unknown]
  - Dyspnoea [Unknown]
  - Headache [Unknown]
  - Systemic lupus erythematosus [Unknown]
